FAERS Safety Report 5352350-2 (Version None)
Quarter: 2007Q2

REPORT INFORMATION
  Report Type: 
  Country: None (occurrence: None)
  Receive Date: 20070611
  Receipt Date: 20070608
  Transmission Date: 20071010
  Serious: Yes (Hospitalization)
  Sender: FDA-Public Use
  Company Number: CA-BRISTOL-MYERS SQUIBB COMPANY-13740691

PATIENT
  Age: 56 Year
  Sex: Male
  Weight: 40 kg

DRUGS (10)
  1. CISPLATIN [Suspect]
     Indication: OESOPHAGEAL CARCINOMA
     Route: 042
     Dates: start: 20070305, end: 20070403
  2. IRINOTECAN HCL [Suspect]
     Indication: OESOPHAGEAL CARCINOMA
     Route: 042
     Dates: start: 20070305, end: 20070403
  3. SOFLAX [Concomitant]
     Dates: start: 20070303, end: 20070317
  4. DILAUDID [Concomitant]
     Dates: start: 20070101
  5. LIPITOR [Concomitant]
     Dates: start: 19860101
  6. ATIVAN [Concomitant]
     Dates: start: 20050101
  7. DIDROCAL [Concomitant]
     Dates: start: 19860101, end: 20070320
  8. VITAMIN D [Concomitant]
     Dates: start: 19860101
  9. CALCIUM CHLORIDE [Concomitant]
     Dates: start: 19860101, end: 20070317
  10. LACTULOSE [Concomitant]
     Dates: start: 20070303, end: 20070317

REACTIONS (2)
  - DEHYDRATION [None]
  - DIARRHOEA [None]
